FAERS Safety Report 7728874-7 (Version None)
Quarter: 2011Q3

REPORT INFORMATION
  Report Type: 
  Country: None (occurrence: None)
  Receive Date: 20110906
  Receipt Date: 20110830
  Transmission Date: 20111222
  Serious: Yes (Other)
  Sender: FDA-Public Use
  Company Number: AR-AMGEN-ARGSP2011043680

PATIENT
  Age: 58 Year
  Sex: Female
  Weight: 95 kg

DRUGS (2)
  1. ENBREL [Suspect]
     Indication: RHEUMATOID ARTHRITIS
     Dosage: 25 MG, WEEKLY
     Route: 058
     Dates: start: 20021208
  2. BILETAN [Concomitant]
     Dosage: UNK

REACTIONS (4)
  - DEPRESSION [None]
  - ARTHRALGIA [None]
  - NEPHROLITHIASIS [None]
  - WEIGHT INCREASED [None]
